FAERS Safety Report 13853180 (Version 1)
Quarter: 2017Q3

REPORT INFORMATION
  Report Type: Spontaneous
  Country: US (occurrence: US)
  Receive Date: 20170809
  Receipt Date: 20170809
  Transmission Date: 20171127
  Serious: Yes (Life-Threatening)
  Sender: FDA-Public Use
  Company Number: None

PATIENT
  Age: 34 Year
  Sex: Female
  Weight: 116.1 kg

DRUGS (8)
  1. OCREVUS [Suspect]
     Active Substance: OCRELIZUMAB
     Indication: MULTIPLE SCLEROSIS
     Dosage: ?          OTHER FREQUENCY:DAY 1 AND DAY 15;?
     Route: 043
     Dates: start: 20170727, end: 20170727
  2. NEURONTIN [Concomitant]
     Active Substance: GABAPENTIN
  3. VITAMIN D [Concomitant]
     Active Substance: CHOLECALCIFEROL
  4. PRILOSEC [Concomitant]
     Active Substance: OMEPRAZOLE MAGNESIUM
  5. MULTIVITAMIN WITH MINERALS [Concomitant]
     Active Substance: MINERALS\VITAMINS
  6. DESYREL [Concomitant]
     Active Substance: TRAZODONE HYDROCHLORIDE
  7. BUSPAR [Concomitant]
     Active Substance: BUSPIRONE HYDROCHLORIDE
  8. SYMMETREL [Concomitant]
     Active Substance: AMANTADINE HYDROCHLORIDE

REACTIONS (6)
  - Dysphagia [None]
  - Blood pressure increased [None]
  - Angioedema [None]
  - Tachycardia [None]
  - Hypersensitivity [None]
  - Throat tightness [None]

NARRATIVE: CASE EVENT DATE: 20170727
